FAERS Safety Report 25446831 (Version 1)
Quarter: 2025Q2

REPORT INFORMATION
  Report Type: Other
  Country: US (occurrence: US)
  Receive Date: 20250617
  Receipt Date: 20250617
  Transmission Date: 20250716
  Serious: Yes (Death, Other)
  Sender: HLS THERAPEUTICS
  Company Number: US-HLS-202500235

PATIENT

DRUGS (1)
  1. CLOZAPINE [Suspect]
     Active Substance: CLOZAPINE
     Indication: Schizoaffective disorder bipolar type
     Route: 048

REACTIONS (4)
  - Cardiac disorder [Unknown]
  - Product use in unapproved indication [Unknown]
  - Death [Fatal]
  - Diabetic end stage renal disease [Unknown]
